FAERS Safety Report 5161316-7 (Version None)
Quarter: 2006Q4

REPORT INFORMATION
  Report Type: 
  Country: None (occurrence: None)
  Receive Date: 20061130
  Receipt Date: 20061031
  Transmission Date: 20070319
  Serious: No
  Sender: FDA-Public Use
  Company Number: US-BRISTOL-MYERS SQUIBB COMPANY-13561519

PATIENT
  Age: 63 Year
  Sex: Male
  Weight: 107 kg

DRUGS (6)
  1. ERBITUX [Suspect]
     Indication: TONSIL CANCER
     Dates: start: 20061016, end: 20061016
  2. LOTREL [Concomitant]
  3. LIPITOR [Concomitant]
  4. PRILOSEC [Concomitant]
  5. LOVENOX [Concomitant]
  6. KYTRIL [Concomitant]

REACTIONS (2)
  - ACNE [None]
  - PRURITUS [None]
